FAERS Safety Report 6136913-2 (Version None)
Quarter: 2009Q1

REPORT INFORMATION
  Report Type: 
  Country: None (occurrence: None)
  Receive Date: 20090330
  Receipt Date: 20090324
  Transmission Date: 20090719
  Serious: Yes (Hospitalization)
  Sender: FDA-Public Use
  Company Number: JP-MERCK-0902USA03906

PATIENT
  Age: 50 Year
  Sex: Female
  Weight: 70 kg

DRUGS (6)
  1. PRIMAXIN [Suspect]
     Indication: PYREXIA
     Route: 041
     Dates: start: 20090125, end: 20090128
  2. MEDROL [Concomitant]
     Indication: HAEMOLYTIC ANAEMIA
     Route: 048
     Dates: start: 20090115, end: 20090126
  3. MEDROL [Concomitant]
     Route: 048
     Dates: start: 20090127, end: 20090205
  4. BENAMBAX [Suspect]
     Indication: ANTIFUNGAL PROPHYLAXIS
     Route: 065
     Dates: start: 20090122, end: 20090122
  5. MINOCYCLINE HCL [Concomitant]
     Route: 065
  6. CYCLOPHOSPHAMIDE [Concomitant]
     Indication: CHRONIC LYMPHOCYTIC LEUKAEMIA
     Route: 048
     Dates: start: 20080901, end: 20090212

REACTIONS (2)
  - PNEUMONIA [None]
  - RHABDOMYOLYSIS [None]
